FAERS Safety Report 17579634 (Version 3)
Quarter: 2020Q3

REPORT INFORMATION
  Report Type: Spontaneous
  Country: US (occurrence: US)
  Receive Date: 20200325
  Receipt Date: 20200910
  Transmission Date: 20201102
  Serious: Yes (Hospitalization, Other)
  Sender: FDA-Public Use
  Company Number: US-GILEAD-2020-0455880

PATIENT
  Age: 44 Year
  Sex: Female
  Weight: 162.36 kg

DRUGS (23)
  1. DIPROLENE AF [Concomitant]
     Active Substance: BETAMETHASONE DIPROPIONATE
  2. NORVASC [Concomitant]
     Active Substance: AMLODIPINE BESYLATE
  3. AZITHROMYCIN ANHYDROUS. [Concomitant]
     Active Substance: AZITHROMYCIN ANHYDROUS
  4. BETAMETHASONE. [Concomitant]
     Active Substance: BETAMETHASONE
  5. IRON [Concomitant]
     Active Substance: IRON
  6. WOMEN ^S DAILY FORMULA [Concomitant]
     Active Substance: VITAMINS
  7. GENVOYA [Concomitant]
     Active Substance: COBICISTAT\ELVITEGRAVIR\EMTRICITABINE\TENOFOVIR ALAFENAMIDE FUMARATE
  8. PROZAC [Concomitant]
     Active Substance: FLUOXETINE HYDROCHLORIDE
  9. PREZISTA [Concomitant]
     Active Substance: DARUNAVIR ETHANOLATE
  10. METOPROLOL. [Concomitant]
     Active Substance: METOPROLOL
  11. NAPROXEN. [Concomitant]
     Active Substance: NAPROXEN
  12. HYDROXYZINE [Concomitant]
     Active Substance: HYDROXYZINE HYDROCHLORIDE
  13. LISINOPRIL/HYDROKLORTIAZID [Concomitant]
  14. TESSALON [Concomitant]
     Active Substance: BENZONATATE
  15. LISINOPRIL. [Concomitant]
     Active Substance: LISINOPRIL
  16. BUSPAR [Concomitant]
     Active Substance: BUSPIRONE HYDROCHLORIDE
  17. HYDRALAZINE [Concomitant]
     Active Substance: HYDRALAZINE HYDROCHLORIDE
  18. PROAIR HFA [Concomitant]
     Active Substance: ALBUTEROL SULFATE
  19. VISTARIL [HYDROXYZINE HYDROCHLORIDE] [Concomitant]
  20. ATRIPLA [Suspect]
     Active Substance: EFAVIRENZ\EMTRICITABINE\TENOFOVIR DISOPROXIL FUMARATE
     Indication: HIV INFECTION
     Dosage: UNK
     Route: 048
     Dates: start: 201205, end: 201711
  21. SUSTIVA [Concomitant]
     Active Substance: EFAVIRENZ
  22. BACTRIM [Concomitant]
     Active Substance: SULFAMETHOXAZOLE\TRIMETHOPRIM
  23. POTASSIUM CHLORIDE. [Concomitant]
     Active Substance: POTASSIUM CHLORIDE

REACTIONS (7)
  - Acute kidney injury [Not Recovered/Not Resolved]
  - Anhedonia [Not Recovered/Not Resolved]
  - Anxiety [Not Recovered/Not Resolved]
  - Chronic kidney disease [Not Recovered/Not Resolved]
  - Emotional distress [Not Recovered/Not Resolved]
  - Economic problem [Not Recovered/Not Resolved]
  - Pain [Not Recovered/Not Resolved]

NARRATIVE: CASE EVENT DATE: 201711
